FAERS Safety Report 10986090 (Version 1)
Quarter: 2015Q2

REPORT INFORMATION
  Report Type: Spontaneous
  Country: US (occurrence: None)
  Receive Date: 20150403
  Receipt Date: 20150403
  Transmission Date: 20150821
  Serious: Yes (Hospitalization)
  Sender: FDA-Public Use
  Company Number: None

PATIENT
  Age: 68 Year
  Sex: Male
  Weight: 97.52 kg

DRUGS (9)
  1. FISH OIL [Concomitant]
     Active Substance: FISH OIL
  2. LORSANTIN [Concomitant]
  3. ASA [Concomitant]
     Active Substance: ASPIRIN
  4. ANDROGEL [Suspect]
     Active Substance: TESTOSTERONE
     Dosage: APPLIED TO A SURFACE, USUALLY THE SKIN
  5. PLAVIX [Concomitant]
     Active Substance: CLOPIDOGREL BISULFATE
  6. METROPROLOL [Concomitant]
     Active Substance: METOPROLOL
  7. ZENTIA [Concomitant]
  8. CRESTOR [Concomitant]
     Active Substance: ROSUVASTATIN CALCIUM
  9. FENOPROFIC ACID [Concomitant]

REACTIONS (1)
  - Mesenteric vein thrombosis [None]

NARRATIVE: CASE EVENT DATE: 20130912
